FAERS Safety Report 17744965 (Version 2)
Quarter: 2020Q2

REPORT INFORMATION
  Report Type: Spontaneous
  Country: US (occurrence: US)
  Receive Date: 20200505
  Receipt Date: 20200506
  Transmission Date: 20200714
  Serious: No
  Sender: FDA-Public Use
  Company Number: US-PFIZER INC-2020179264

PATIENT
  Age: 70 Year
  Sex: Female
  Weight: 83.91 kg

DRUGS (1)
  1. LATANOPROST. [Suspect]
     Active Substance: LATANOPROST
     Indication: GLAUCOMA
     Dosage: UNK (1 DROP IN EACH EYE BEFORE BED)
     Route: 047
     Dates: end: 20200403

REACTIONS (7)
  - Wound haemorrhage [Recovered/Resolved]
  - Wound [Recovered/Resolved]
  - Skin lesion [Recovering/Resolving]
  - Erythema [Recovered/Resolved]
  - Skin exfoliation [Recovering/Resolving]
  - Hypersensitivity [Recovered/Resolved]
  - Pruritus [Recovering/Resolving]
